FAERS Safety Report 13718204 (Version 1)
Quarter: 2017Q3

REPORT INFORMATION
  Report Type: Spontaneous
  Country: ES (occurrence: ES)
  Receive Date: 20170705
  Receipt Date: 20170705
  Transmission Date: 20171127
  Serious: Yes (Other)
  Sender: FDA-Public Use
  Company Number: ES-LPDUSPRD-20170884

PATIENT
  Sex: Female

DRUGS (1)
  1. FERINJECT [Suspect]
     Active Substance: FERRIC CARBOXYMALTOSE
     Dosage: 500 MG
     Route: 042
     Dates: start: 201706

REACTIONS (2)
  - Atrial fibrillation [Unknown]
  - Tachycardia [Unknown]

NARRATIVE: CASE EVENT DATE: 201706
